FAERS Safety Report 8025412-9 (Version None)
Quarter: 2012Q1

REPORT INFORMATION
  Report Type: 
  Country: None (occurrence: None)
  Receive Date: 20120105
  Receipt Date: 20111226
  Transmission Date: 20120608
  Serious: Yes (Other)
  Sender: FDA-Public Use
  Company Number: JP-BAXTER-2011BH040649

PATIENT
  Age: 64 Year
  Sex: Male
  Weight: 76 kg

DRUGS (10)
  1. STUDY DRUG [Suspect]
     Indication: NON-SMALL CELL LUNG CANCER
     Route: 058
     Dates: start: 20111107
  2. LOXOPROFEN [Concomitant]
     Indication: PAIN
     Route: 048
     Dates: start: 20111117
  3. LENDORMIN [Concomitant]
     Indication: INSOMNIA
     Route: 048
     Dates: start: 20111107
  4. BROCIN [Concomitant]
     Indication: COUGH
     Route: 048
     Dates: start: 20111117, end: 20111124
  5. AZITHROMYCIN [Concomitant]
     Indication: INFECTION
     Route: 048
     Dates: start: 20111117, end: 20111119
  6. LAXOBERON [Concomitant]
     Indication: CONSTIPATION
     Route: 048
     Dates: start: 20111117
  7. CYCLOPHOSPHAMIDE [Suspect]
     Indication: NON-SMALL CELL LUNG CANCER STAGE III
     Route: 042
     Dates: start: 20110801, end: 20110801
  8. STUDY DRUG [Suspect]
     Route: 058
     Dates: start: 20110804, end: 20110922
  9. AMARYL [Concomitant]
     Indication: DIABETES MELLITUS
     Route: 048
     Dates: start: 20111108
  10. SENNOSIDE A+B CALCIUM [Concomitant]
     Indication: CONSTIPATION
     Route: 065
     Dates: start: 20111117

REACTIONS (1)
  - HYPOTHYROIDISM [None]
